FAERS Safety Report 4874173-0 (Version None)
Quarter: 2005Q4

REPORT INFORMATION
  Report Type: 
  Country: None (occurrence: None)
  Receive Date: 20051201
  Receipt Date: 20050808
  Transmission Date: 20060501
  Serious: No
  Sender: FDA-Public Use
  Company Number: 2005PV000986

PATIENT
  Age: 50 Year
  Sex: Female
  Weight: 110.6777 kg

DRUGS (22)
  1. BYETTA [Suspect]
     Indication: DIABETES MELLITUS NON-INSULIN-DEPENDENT
     Dosage: 5 MCG; BID; SC
     Route: 058
     Dates: start: 20050723, end: 20050801
  2. PRANDIN [Concomitant]
  3. AVANDIA [Concomitant]
  4. LEVOTHYROXINE SODIUM [Concomitant]
  5. ACCOLADE [Concomitant]
  6. PRAVACHOL [Concomitant]
  7. TORSEMIDE [Concomitant]
  8. CELEBREX [Concomitant]
  9. EVISTA [Concomitant]
  10. TRAMADOL [Concomitant]
  11. ASPIRIN [Concomitant]
  12. SUCRALFATE [Concomitant]
  13. KLOR-CON [Concomitant]
  14. DILTIAZEM HCL [Concomitant]
  15. LORATADINE [Concomitant]
  16. ALLOPURINOL [Concomitant]
  17. NEXIUM [Concomitant]
  18. NASONEX [Concomitant]
  19. ATROVENT [Concomitant]
  20. INTAL [Concomitant]
  21. ADVAIR DISKUS 100/50 [Concomitant]
  22. ALBUTEROL [Concomitant]

REACTIONS (6)
  - ABDOMINAL PAIN UPPER [None]
  - ANOREXIA [None]
  - GASTRIC PH DECREASED [None]
  - NAUSEA [None]
  - VOMITING [None]
  - WEIGHT DECREASED [None]
